FAERS Safety Report 8450617-2 (Version None)
Quarter: 2012Q2

REPORT INFORMATION
  Report Type: 
  Country: None (occurrence: None)
  Receive Date: 20120620
  Receipt Date: 20120608
  Transmission Date: 20120825
  Serious: Yes (Hospitalization)
  Sender: FDA-Public Use
  Company Number: US-VERTEX PHARMACEUTICALS INC.-AE-2012-008689

PATIENT
  Sex: Male
  Weight: 72.64 kg

DRUGS (4)
  1. AMBIEN [Concomitant]
     Route: 048
  2. RIBAVIRIN [Concomitant]
     Indication: HEPATITIS C
     Route: 048
     Dates: start: 20110828
  3. PEGASYS [Concomitant]
     Indication: HEPATITIS C
     Route: 058
     Dates: start: 20110828
  4. INCIVEK [Suspect]
     Indication: HEPATITIS C
     Route: 048
     Dates: start: 20110828, end: 20111119

REACTIONS (6)
  - WEIGHT DECREASED [None]
  - ANORECTAL DISCOMFORT [None]
  - ANAEMIA [None]
  - INFECTION [None]
  - NAUSEA [None]
  - PRURITUS [None]
